FAERS Safety Report 7844696-0 (Version None)
Quarter: 2011Q4

REPORT INFORMATION
  Report Type: 
  Country: None (occurrence: None)
  Receive Date: 20111017
  Receipt Date: 20111005
  Transmission Date: 20120403
  Serious: Yes (Death)
  Sender: FDA-Public Use
  Company Number: B0755388A

PATIENT
  Age: 75 Year
  Sex: Male

DRUGS (3)
  1. FONDAPARINUX SODIUM [Suspect]
     Dosage: SUBCUTANEOUS
     Route: 058
  2. ASPIRIN [Suspect]
     Indication: ACUTE CORONARY SYNDROME
  3. CLOPIDOGREL [Suspect]

REACTIONS (4)
  - DYSARTHRIA [None]
  - VISUAL IMPAIRMENT [None]
  - HAEMORRHAGE [None]
  - VIITH NERVE PARALYSIS [None]
